FAERS Safety Report 8849534 (Version 1)
Quarter: 2012Q4

REPORT INFORMATION
  Report Type: Spontaneous
  Country: US (occurrence: None)
  Receive Date: 20121018
  Receipt Date: 20121018
  Transmission Date: 20130627
  Serious: No
  Sender: FDA-Public Use
  Company Number: None

PATIENT
  Age: 10 Year
  Sex: Male
  Weight: 32.66 kg

DRUGS (2)
  1. MONTELUKAST [Suspect]
     Indication: ASTHMA
     Dosage: chew 1 tablet daily, daily, po
     Route: 048
     Dates: start: 20120110, end: 20121017
  2. MONTELUKAST [Suspect]
     Indication: MULTIPLE ALLERGIES
     Dosage: chew 1 tablet daily, daily, po
     Route: 048
     Dates: start: 20120110, end: 20121017

REACTIONS (9)
  - Psychotic disorder [None]
  - Affective disorder [None]
  - Tic [None]
  - Anxiety [None]
  - Fear [None]
  - Insomnia [None]
  - Thinking abnormal [None]
  - Impulse-control disorder [None]
  - Emotional distress [None]
